FAERS Safety Report 17812642 (Version 4)
Quarter: 2020Q3

REPORT INFORMATION
  Report Type: Spontaneous
  Country: HR (occurrence: HR)
  Receive Date: 20200521
  Receipt Date: 20200708
  Transmission Date: 20201102
  Serious: Yes (Hospitalization, Other)
  Sender: FDA-Public Use
  Company Number: NVSC2020HR136727

PATIENT
  Age: 65 Year
  Sex: Male

DRUGS (10)
  1. VORICONAZOLE. [Suspect]
     Active Substance: VORICONAZOLE
     Indication: ASPERGILLUS INFECTION
     Dosage: UNK
     Route: 065
     Dates: start: 201906
  2. CASPOFUNGIN [Suspect]
     Active Substance: CASPOFUNGIN
     Indication: ASPERGILLUS INFECTION
     Dosage: UNK
     Route: 065
     Dates: start: 201907, end: 2019
  3. MYCOPHENOLATE MOFETIL. [Concomitant]
     Active Substance: MYCOPHENOLATE MOFETIL
     Indication: PRODUCT USED FOR UNKNOWN INDICATION
     Dosage: UNK
     Route: 065
     Dates: end: 201907
  4. VORICONAZOLE. [Suspect]
     Active Substance: VORICONAZOLE
     Dosage: UNK (14 DAYS OF TREATMENT)
     Route: 051
     Dates: start: 201907, end: 201907
  5. VANCOMYCIN [Concomitant]
     Active Substance: VANCOMYCIN
     Indication: INFLAMMATORY MARKER INCREASED
     Dosage: UNK
     Route: 065
     Dates: start: 201907
  6. INDOMETHACIN. [Concomitant]
     Active Substance: INDOMETHACIN
     Indication: GOUTY ARTHRITIS
     Dosage: UNK, UNKNOWN FREQ.
     Route: 065
     Dates: start: 2009
  7. BASILIXIMAB [Concomitant]
     Active Substance: BASILIXIMAB
     Indication: RENAL TRANSPLANT
     Dosage: UNK UNK, UNKNOWN FREQ.
     Route: 065
     Dates: start: 2013
  8. MEROPENEM. [Concomitant]
     Active Substance: MEROPENEM
     Indication: INFLAMMATORY MARKER INCREASED
     Dosage: UNK
     Route: 065
     Dates: start: 201907
  9. TACROLIMUS. [Concomitant]
     Active Substance: TACROLIMUS
     Indication: PRODUCT USED FOR UNKNOWN INDICATION
     Dosage: UNK
     Route: 065
  10. INDOMETHACIN. [Concomitant]
     Active Substance: INDOMETHACIN
     Indication: HYPERURICAEMIA

REACTIONS (8)
  - Liver disorder [Recovered/Resolved]
  - Immunosuppressant drug level increased [Recovered/Resolved]
  - Drug resistance [Unknown]
  - Pneumonia [Recovered/Resolved]
  - Cerebral disorder [Recovered/Resolved]
  - Complications of transplanted kidney [Recovered/Resolved]
  - Sinusitis aspergillus [Recovered/Resolved]
  - Urinary tract infection [Recovered/Resolved]
